FAERS Safety Report 19888308 (Version 1)
Quarter: 2021Q3

REPORT INFORMATION
  Report Type: Other
  Country: US (occurrence: US)
  Receive Date: 20210928
  Receipt Date: 20210928
  Transmission Date: 20211014
  Serious: Yes (Hospitalization)
  Sender: FDA-Public Use
  Company Number: US-ORCHID HEALTHCARE-2118893

PATIENT
  Age: 6 Year
  Sex: Male
  Weight: 27 kg

DRUGS (1)
  1. CETIRIZINE HYDROCHLORIDE. [Suspect]
     Active Substance: CETIRIZINE HYDROCHLORIDE
     Indication: RHINITIS ALLERGIC
     Route: 048

REACTIONS (4)
  - Toxicity to various agents [Recovered/Resolved]
  - Anticholinergic syndrome [Recovered/Resolved]
  - Accidental overdose [Recovered/Resolved]
  - Incorrect dose administered [Recovered/Resolved]
